FAERS Safety Report 5342242-7 (Version None)
Quarter: 2007Q2

REPORT INFORMATION
  Report Type: 
  Country: None (occurrence: None)
  Receive Date: 20070601
  Receipt Date: 20070522
  Transmission Date: 20071010
  Serious: Yes (Other)
  Sender: FDA-Public Use
  Company Number: GB-ROCHE-495664

PATIENT
  Age: 61 Year
  Sex: Female
  Weight: 63 kg

DRUGS (3)
  1. XELODA [Suspect]
     Indication: BREAST CANCER
     Route: 048
     Dates: start: 20061129
  2. XELODA [Suspect]
     Dosage: DOSE REDUCED FOR CYCLE 4.
     Route: 048
     Dates: end: 20070402
  3. NAPROXEN [Concomitant]
     Indication: BONE PAIN
     Route: 048
     Dates: start: 20050101, end: 20061129

REACTIONS (3)
  - DEPRESSION [None]
  - PALMAR-PLANTAR ERYTHRODYSAESTHESIA SYNDROME [None]
  - SUICIDAL IDEATION [None]
